FAERS Safety Report 24461581 (Version 1)
Quarter: 2024Q4

REPORT INFORMATION
  Report Type: Report from Study
  Country: US (occurrence: US)
  Receive Date: 20241018
  Receipt Date: 20241018
  Transmission Date: 20250115
  Serious: No
  Sender: ROCHE
  Company Number: US-ROCHE-3576508

PATIENT
  Age: 76 Year
  Sex: Male

DRUGS (3)
  1. RITUXAN [Suspect]
     Active Substance: RITUXIMAB
     Indication: Thyroid cancer
     Dosage: INFUSE 375MG/M2 (800MG TOTAL) INTRAVENOUSLY EVERY WEEK FOR 4 DOSES OVER 4 HOURS
     Route: 041
  2. RITUXAN [Suspect]
     Active Substance: RITUXIMAB
     Indication: Lymphoproliferative disorder
  3. RITUXAN [Suspect]
     Active Substance: RITUXIMAB
     Indication: Monoclonal gammopathy

REACTIONS (2)
  - Off label use [Unknown]
  - No adverse event [Unknown]
